FAERS Safety Report 9248799 (Version 4)
Quarter: 2013Q3

REPORT INFORMATION
  Report Type: Report from Study
  Country: US (occurrence: US)
  Receive Date: 20130423
  Receipt Date: 20130712
  Transmission Date: 20140515
  Serious: Yes (Hospitalization, Other)
  Sender: FDA-Public Use
  Company Number: US-BAYER-2013-043829

PATIENT
  Age: 80 Year
  Sex: Male
  Weight: 81.18 kg

DRUGS (5)
  1. NEXAVAR [Suspect]
     Indication: HEPATIC CANCER
     Dosage: 800 MG, 2 TABLETS, TWICE DAILY
     Route: 048
     Dates: start: 20130313, end: 20130328
  2. NEXAVAR [Suspect]
     Indication: HEPATIC CANCER
     Dosage: 200 MG, 1 TABLET BID
     Dates: start: 20130329
  3. NEXAVAR [Suspect]
     Indication: HEPATIC CANCER
     Dosage: 200 MG, 1 TABLET BY MOUTH EVERY 12 HOURS.
     Route: 048
     Dates: start: 20130412, end: 20130511
  4. NEXAVAR [Suspect]
     Indication: HEPATIC CANCER
     Dosage: 400 MG, QOD  (ONE TABLET EVERY AM AND ONE TABLET EVERY PM)
     Route: 048
     Dates: start: 201305
  5. MULTIVITAMIN [Concomitant]

REACTIONS (13)
  - Pain in extremity [Unknown]
  - Gait disturbance [Not Recovered/Not Resolved]
  - Rash generalised [Not Recovered/Not Resolved]
  - Decubitus ulcer [Unknown]
  - Dysphonia [Unknown]
  - Nausea [Unknown]
  - Diarrhoea [Not Recovered/Not Resolved]
  - Pain in extremity [Unknown]
  - Contusion [Unknown]
  - Joint stiffness [None]
  - Sensation of heaviness [Unknown]
  - Cardiac failure acute [Unknown]
  - Abasia [Unknown]
